FAERS Safety Report 4849608-X (Version None)
Quarter: 2005Q4

REPORT INFORMATION
  Report Type: 
  Country: None (occurrence: None)
  Receive Date: 20051207
  Receipt Date: 20051125
  Transmission Date: 20060501
  Serious: Yes (Death)
  Sender: FDA-Public Use
  Company Number: 2005150311

PATIENT
  Age: 74 Year
  Sex: Female

DRUGS (2)
  1. XALATAN [Suspect]
     Indication: GLAUCOMA
     Dosage: 1 DROP (1 DROP, 1 IN 1 D), OPHTHALMIC
     Route: 047
     Dates: start: 20020101, end: 20041201
  2. CARDIAC THERAPY (CARDIAC THERAPY) [Concomitant]

REACTIONS (1)
  - CARDIAC DISORDER [None]
